FAERS Safety Report 12957311 (Version 3)
Quarter: 2017Q2

REPORT INFORMATION
  Report Type: Spontaneous
  Country: US (occurrence: US)
  Receive Date: 20161118
  Receipt Date: 20170406
  Transmission Date: 20170830
  Serious: Yes (Other)
  Sender: FDA-Public Use
  Company Number: US-BAYER-2016-220608

PATIENT
  Age: 34 Year
  Sex: Female
  Weight: 88.44 kg

DRUGS (6)
  1. VITAMIN B12 [Concomitant]
     Active Substance: CYANOCOBALAMIN
     Dosage: UNK
     Dates: start: 201702
  2. AVELOX [Concomitant]
     Active Substance: MOXIFLOXACIN HYDROCHLORIDE
  3. CIPRO [Suspect]
     Active Substance: CIPROFLOXACIN HYDROCHLORIDE
     Indication: URINARY TRACT INFECTION
     Dosage: 500 MG, UNK
     Dates: start: 20131118, end: 20131119
  4. JUNEL FE 1/20 [Concomitant]
     Active Substance: ETHINYL ESTRADIOL\NORETHINDRONE ACETATE
     Indication: CONTRACEPTION
  5. LEVAQUIN [Concomitant]
     Active Substance: LEVOFLOXACIN
  6. SYNTHROID [Concomitant]
     Active Substance: LEVOTHYROXINE SODIUM
     Indication: AUTOIMMUNE THYROIDITIS
     Dosage: 75 MG, QD
     Dates: start: 2011

REACTIONS (9)
  - Neuropathy peripheral [None]
  - Dysstasia [None]
  - Nerve injury [None]
  - Musculoskeletal injury [None]
  - Injury [None]
  - Mental disorder [None]
  - Nervous system disorder [None]
  - Skin injury [None]
  - Cardiovascular disorder [None]

NARRATIVE: CASE EVENT DATE: 20131119
